FAERS Safety Report 5128134-7 (Version None)
Quarter: 2006Q4

REPORT INFORMATION
  Report Type: 
  Country: None (occurrence: None)
  Receive Date: 20061011
  Receipt Date: 20060921
  Transmission Date: 20070319
  Serious: Yes (Hospitalization)
  Sender: FDA-Public Use
  Company Number: 229729

PATIENT
  Age: 64 Year
  Sex: Male
  Weight: 69.7 kg

DRUGS (5)
  1. AVASTIN [Suspect]
     Indication: COLON CANCER
     Dosage: 523 MG, Q3W, INTRAVENOUS
     Route: 042
     Dates: start: 20060809
  2. CAPECITABINE(CAPECITABINE) [Suspect]
     Indication: COLON CANCER
     Dosage: 1800 MG, BID, ORAL
     Route: 048
     Dates: start: 20060809
  3. OXALIPLATIN [Suspect]
     Indication: COLON CANCER
     Dosage: 229 MG, Q3W, INTRAVENOUS
     Route: 042
     Dates: start: 20060809
  4. ZOCOR [Concomitant]
  5. ADALAT [Concomitant]

REACTIONS (8)
  - ABDOMINAL ADHESIONS [None]
  - ASTHENIA [None]
  - GASTROENTERITIS [None]
  - ILEUS PARALYTIC [None]
  - PLEURAL EFFUSION [None]
  - PNEUMONIA [None]
  - SMALL INTESTINAL OBSTRUCTION [None]
  - STAPHYLOCOCCAL SEPSIS [None]
